FAERS Safety Report 9010760 (Version 1)
Quarter: 2013Q1

REPORT INFORMATION
  Report Type: Spontaneous
  Country: GB (occurrence: GB)
  Receive Date: 20130109
  Receipt Date: 20130109
  Transmission Date: 20140127
  Serious: Yes (Life-Threatening)
  Sender: FDA-Public Use
  Company Number: GB-NOVOPROD-367967

PATIENT
  Age: 54 Year
  Sex: Female
  Weight: 81 kg

DRUGS (3)
  1. VICTOZA [Suspect]
     Indication: DIABETES MELLITUS
     Dosage: 0.6 MG, QD
     Route: 058
     Dates: start: 20120210, end: 20121218
  2. METFORMIN [Concomitant]
     Dosage: 500 MG, TID
  3. SIMVASTATIN [Concomitant]
     Dosage: 20 MG, QD

REACTIONS (1)
  - Gastric ulcer [Recovering/Resolving]
